FAERS Safety Report 7750302-6 (Version None)
Quarter: 2011Q3

REPORT INFORMATION
  Report Type: 
  Country: None (occurrence: None)
  Receive Date: 20110914
  Receipt Date: 20110901
  Transmission Date: 20111222
  Serious: Yes (Hospitalization, Other)
  Sender: FDA-Public Use
  Company Number: US-ELI_LILLY_AND_COMPANY-US201107003897

PATIENT
  Age: 79 Year
  Sex: Female

DRUGS (10)
  1. CARDIZEM [Concomitant]
     Indication: CARDIAC DISORDER
  2. COUMADIN [Concomitant]
  3. FORTEO [Suspect]
     Indication: OSTEOPOROSIS
     Dosage: 20 UG, QD
     Route: 065
     Dates: start: 20060101
  4. FORTEO [Suspect]
     Dosage: 20 UG, QD
     Dates: end: 20110701
  5. NEXIUM [Concomitant]
  6. BISOPROLOL FUMARATE [Concomitant]
  7. XOPENEX [Concomitant]
  8. SYMBICORT [Concomitant]
     Indication: HYPERSENSITIVITY
  9. FORTEO [Suspect]
     Dosage: 20 UG, QD
     Dates: start: 20110601
  10. ISOSORBIDE DINITRATE [Concomitant]

REACTIONS (15)
  - COMPRESSION FRACTURE [None]
  - PLATELET COUNT DECREASED [None]
  - DYSPNOEA [None]
  - HAEMORRHOIDS [None]
  - MALAISE [None]
  - UPPER LIMB FRACTURE [None]
  - GAIT DISTURBANCE [None]
  - PAIN [None]
  - CARDIAC FAILURE CONGESTIVE [None]
  - CARDIAC DISORDER [None]
  - RECTAL HAEMORRHAGE [None]
  - HOSPITALISATION [None]
  - OEDEMA PERIPHERAL [None]
  - CHRONIC OBSTRUCTIVE PULMONARY DISEASE [None]
  - ARTHROPATHY [None]
